FAERS Safety Report 6864077-6 (Version None)
Quarter: 2010Q3

REPORT INFORMATION
  Report Type: 
  Country: None (occurrence: None)
  Receive Date: 20100721
  Receipt Date: 20080721
  Transmission Date: 20110219
  Serious: No
  Sender: FDA-Public Use
  Company Number: US-PFIZER INC-2008022967

PATIENT
  Sex: Male
  Weight: 78.47 kg

DRUGS (2)
  1. CHANTIX [Suspect]
     Indication: SMOKING CESSATION THERAPY
     Dosage: BID: EVERY DAY
     Route: 048
     Dates: start: 20071101
  2. CYMBALTA [Concomitant]

REACTIONS (2)
  - NEGATIVE THOUGHTS [None]
  - THINKING ABNORMAL [None]
